FAERS Safety Report 24328332 (Version 1)
Quarter: 2024Q3

REPORT INFORMATION
  Report Type: Report from Study
  Country: BE (occurrence: BE)
  Receive Date: 20240917
  Receipt Date: 20240917
  Transmission Date: 20241017
  Serious: Yes (Hospitalization)
  Sender: GLAXOSMITHKLINE
  Company Number: None

PATIENT

DRUGS (38)
  1. EPOPROSTENOL SODIUM [Suspect]
     Active Substance: EPOPROSTENOL SODIUM
     Indication: Pulmonary arterial hypertension
     Dosage: UNK, QD, TOTAL DAILY DOSE 3
     Route: 042
     Dates: start: 20221212, end: 20221213
  2. EPOPROSTENOL SODIUM [Suspect]
     Active Substance: EPOPROSTENOL SODIUM
     Dosage: UNK, QD, TOTAL DAILY DOSE 4
     Route: 042
     Dates: start: 20221213, end: 20221220
  3. EPOPROSTENOL SODIUM [Suspect]
     Active Substance: EPOPROSTENOL SODIUM
     Dosage: UNK, QD, TOTAL DAILY DOSE 7
     Route: 042
     Dates: start: 20221224, end: 20221230
  4. EPOPROSTENOL SODIUM [Suspect]
     Active Substance: EPOPROSTENOL SODIUM
     Dosage: UNK, QD, TOTAL DAILY DOSE 7
     Route: 042
     Dates: start: 20221224, end: 20221230
  5. EPOPROSTENOL SODIUM [Suspect]
     Active Substance: EPOPROSTENOL SODIUM
     Dosage: UNK, QD, TOTAL DAILY DOSE 8
     Route: 042
     Dates: start: 20221230, end: 20230117
  6. EPOPROSTENOL SODIUM [Suspect]
     Active Substance: EPOPROSTENOL SODIUM
     Dosage: UNK, QD, TOTAL DAILY DOSE 10.5
     Route: 042
     Dates: start: 20230227, end: 20230331
  7. EPOPROSTENOL SODIUM [Suspect]
     Active Substance: EPOPROSTENOL SODIUM
     Dosage: UNK, QD, TOTAL DAILY DOSE 9
     Route: 042
     Dates: start: 20230117, end: 20230123
  8. EPOPROSTENOL SODIUM [Suspect]
     Active Substance: EPOPROSTENOL SODIUM
     Dosage: UNK, QD, TOTAL DAILY DOSE 11
     Route: 042
     Dates: start: 20230331, end: 20230404
  9. EPOPROSTENOL SODIUM [Suspect]
     Active Substance: EPOPROSTENOL SODIUM
     Dosage: UNK, QD, TOTAL DAILY DOSE 11.5
     Route: 042
     Dates: start: 20230404, end: 20230416
  10. EPOPROSTENOL SODIUM [Suspect]
     Active Substance: EPOPROSTENOL SODIUM
     Dosage: UNK, QD, TOTAL DAILY DOSE 11.5
     Route: 042
     Dates: start: 20230516, end: 20230530
  11. EPOPROSTENOL SODIUM [Suspect]
     Active Substance: EPOPROSTENOL SODIUM
     Dosage: UNK, QD, TOTAL DAILY DOSE 11
     Route: 042
     Dates: start: 20230704, end: 20230710
  12. EPOPROSTENOL SODIUM [Suspect]
     Active Substance: EPOPROSTENOL SODIUM
     Dosage: UNK, QD, TOTAL DAILY DOSE 7
     Route: 042
     Dates: start: 20230718, end: 20230724
  13. EPOPROSTENOL SODIUM [Suspect]
     Active Substance: EPOPROSTENOL SODIUM
     Dosage: UNK, QD, TOTAL DAILY DOSE 5
     Route: 042
     Dates: start: 20230801, end: 20230808
  14. EPOPROSTENOL SODIUM [Suspect]
     Active Substance: EPOPROSTENOL SODIUM
     Dosage: UNK, QD, TOTAL DAILY DOSE 9
     Route: 042
     Dates: start: 20230724, end: 20230801
  15. EPOPROSTENOL SODIUM [Suspect]
     Active Substance: EPOPROSTENOL SODIUM
     Dosage: UNK, QD, TOTAL DAILY DOSE 12.5
     Route: 042
     Dates: start: 20230606, end: 202307
  16. EPOPROSTENOL SODIUM [Suspect]
     Active Substance: EPOPROSTENOL SODIUM
     Dosage: UNK, QD, TOTAL DAILY DOSE 10
     Route: 042
     Dates: start: 20230207, end: 20230227
  17. EPOPROSTENOL SODIUM [Suspect]
     Active Substance: EPOPROSTENOL SODIUM
     Dosage: UNK, QD, TOTAL DAILY DOSE 3
     Route: 042
     Dates: start: 20230808, end: 20230817
  18. EPOPROSTENOL SODIUM [Suspect]
     Active Substance: EPOPROSTENOL SODIUM
     Dosage: UNK, QD, TOTAL DAILY DOSE 12
     Route: 042
     Dates: start: 20230530, end: 20230606
  19. EPOPROSTENOL SODIUM [Suspect]
     Active Substance: EPOPROSTENOL SODIUM
     Dosage: UNK, QD, TOTAL DAILY DOSE 9
     Route: 042
     Dates: start: 20230710, end: 20230718
  20. EPOPROSTENOL SODIUM [Suspect]
     Active Substance: EPOPROSTENOL SODIUM
     Dosage: UNK, QD, TOTAL DAILY DOSE 2
     Route: 042
     Dates: start: 20230817, end: 20230821
  21. EPOPROSTENOL SODIUM [Suspect]
     Active Substance: EPOPROSTENOL SODIUM
     Dosage: UNK, QD, TOTAL DAILY DOSE 8
     Route: 042
     Dates: start: 20221220, end: 20221224
  22. EPOPROSTENOL SODIUM [Suspect]
     Active Substance: EPOPROSTENOL SODIUM
     Dosage: UNK, QD, TOTAL DAILY DOSE 12
     Route: 042
     Dates: start: 20230416, end: 20230516
  23. EPOPROSTENOL SODIUM [Suspect]
     Active Substance: EPOPROSTENOL SODIUM
     Dosage: UNK, QD, TOTAL DAILY DOSE 9.5
     Route: 042
     Dates: start: 20230123, end: 20230207
  24. EPOPROSTENOL SODIUM [Suspect]
     Active Substance: EPOPROSTENOL SODIUM
     Dosage: UNK, QD, TOTAL DAILY DOSE 1
     Route: 042
     Dates: start: 20230821, end: 20230822
  25. MACITENTAN [Suspect]
     Active Substance: MACITENTAN
     Indication: Pulmonary arterial hypertension
     Dosage: 10 MG
     Route: 048
     Dates: start: 20221216
  26. SELEXIPAG [Suspect]
     Active Substance: SELEXIPAG
     Indication: Pulmonary arterial hypertension
     Dosage: 400 ?G
     Route: 048
     Dates: start: 20230704, end: 20230710
  27. SELEXIPAG [Suspect]
     Active Substance: SELEXIPAG
     Dosage: 800 ?G
     Route: 048
     Dates: start: 20230710, end: 20230718
  28. SELEXIPAG [Suspect]
     Active Substance: SELEXIPAG
     Dosage: 1200 ?G
     Route: 048
     Dates: start: 20230718, end: 20230724
  29. SELEXIPAG [Suspect]
     Active Substance: SELEXIPAG
     Dosage: 800 ?G
     Route: 048
     Dates: start: 20230724, end: 20230801
  30. SELEXIPAG [Suspect]
     Active Substance: SELEXIPAG
     Dosage: 1200 ?G
     Route: 048
     Dates: start: 20230801, end: 20230808
  31. SELEXIPAG [Suspect]
     Active Substance: SELEXIPAG
     Dosage: 1600 ?G
     Route: 048
     Dates: start: 20230808, end: 20230817
  32. SELEXIPAG [Suspect]
     Active Substance: SELEXIPAG
     Dosage: 2000 ?G
     Route: 048
     Dates: start: 20230817, end: 20231213
  33. SELEXIPAG [Suspect]
     Active Substance: SELEXIPAG
     Dosage: 1600 ?G
     Route: 048
     Dates: start: 20231213, end: 20231220
  34. SELEXIPAG [Suspect]
     Active Substance: SELEXIPAG
     Dosage: 1200 ?G
     Route: 048
     Dates: start: 20231220, end: 20231227
  35. SELEXIPAG [Suspect]
     Active Substance: SELEXIPAG
     Dosage: 800 ?G
     Route: 048
     Dates: start: 20231227, end: 20240103
  36. SELEXIPAG [Suspect]
     Active Substance: SELEXIPAG
     Dosage: 400 ?G
     Route: 048
     Dates: start: 20240103, end: 20240110
  37. TADALAFIL [Concomitant]
     Active Substance: TADALAFIL
     Indication: Pulmonary arterial hypertension
     Dosage: UNK UNK, QD, TOTAL DAILY DOSE 20
     Route: 048
     Dates: start: 20230214, end: 20230314
  38. TADALAFIL [Concomitant]
     Active Substance: TADALAFIL
     Dosage: UNK UNK, QD, TOTAL DAILY DOSE 40
     Route: 048
     Dates: start: 20230314

REACTIONS (5)
  - Vomiting [Recovered/Resolved]
  - Catheterisation cardiac [Recovered/Resolved]
  - Gastroenteritis [Unknown]
  - Headache [Recovered/Resolved]
  - Flushing [Recovered/Resolved]

NARRATIVE: CASE EVENT DATE: 20230404
